FAERS Safety Report 8819771 (Version 3)
Quarter: 2014Q4

REPORT INFORMATION
  Report Type: Report from Study
  Country: US (occurrence: US)
  Receive Date: 20121001
  Receipt Date: 20141030
  Transmission Date: 20150529
  Serious: Yes (Death, Hospitalization)
  Sender: FDA-Public Use
  Company Number: US-ROCHE-1136788

PATIENT
  Sex: Female
  Weight: 58 kg

DRUGS (11)
  1. AREDIA [Concomitant]
     Active Substance: PAMIDRONATE DISODIUM
     Dosage: 4 WEEKS
     Route: 042
  2. HERCEPTIN [Suspect]
     Active Substance: TRASTUZUMAB
     Indication: BREAST CANCER FEMALE
     Dosage: IN 250 CC NS OVER 90 MIN
     Route: 042
     Dates: start: 19990209, end: 19990415
  3. GENTAMICIN. [Concomitant]
     Active Substance: GENTAMICIN
     Route: 042
     Dates: start: 19990207
  4. HERCEPTIN [Suspect]
     Active Substance: TRASTUZUMAB
     Indication: METASTASES TO BONE MARROW
  5. METHOTREXATE [Concomitant]
     Active Substance: METHOTREXATE
     Route: 042
  6. FLURACIL [Concomitant]
     Active Substance: FLUOROURACIL
     Route: 042
  7. CYTOXAN [Concomitant]
     Active Substance: CYCLOPHOSPHAMIDE
     Route: 042
  8. PROCRIT [Concomitant]
     Active Substance: ERYTHROPOIETIN
     Dosage: SQ OF WEEK
     Route: 065
  9. FILGRASTIM [Concomitant]
     Active Substance: FILGRASTIM
     Route: 065
  10. DECADRON [Concomitant]
     Active Substance: DEXAMETHASONE
     Route: 065
  11. ZOFRAN [Concomitant]
     Active Substance: ONDANSETRON HYDROCHLORIDE
     Route: 065

REACTIONS (8)
  - Chills [Unknown]
  - Breast cancer [Unknown]
  - Dyspnoea [Unknown]
  - Urinary tract infection [Unknown]
  - Death [Fatal]
  - Abdominal pain [Unknown]
  - Fatigue [Unknown]
  - Vomiting [Recovered/Resolved]
